FAERS Safety Report 15287816 (Version 1)
Quarter: 2018Q3

REPORT INFORMATION
  Report Type: Report from Study
  Country: None (occurrence: AR)
  Receive Date: 20180817
  Receipt Date: 20180817
  Transmission Date: 20181010
  Serious: Yes (Hospitalization)
  Sender: FDA-Public Use
  Company Number: AR-ABBVIE-18K-007-2452724-00

PATIENT
  Age: 53 Year
  Sex: Female

DRUGS (1)
  1. HUMIRA [Suspect]
     Active Substance: ADALIMUMAB
     Indication: RHEUMATOID ARTHRITIS
     Route: 058
     Dates: start: 20180208

REACTIONS (2)
  - Inflammation [Recovering/Resolving]
  - Contusion [Recovering/Resolving]

NARRATIVE: CASE EVENT DATE: 20180806
